FAERS Safety Report 18863688 (Version 2)
Quarter: 2021Q1

REPORT INFORMATION
  Report Type: Spontaneous
  Country: FR (occurrence: FR)
  Receive Date: 20210209
  Receipt Date: 20210219
  Transmission Date: 20210420
  Serious: Yes (Hospitalization)
  Sender: FDA-Public Use
  Company Number: FR-TEVA-2021-FR-1877440

PATIENT
  Age: 19 Year
  Sex: Male

DRUGS (8)
  1. DIAZEPAM. [Concomitant]
     Active Substance: DIAZEPAM
  2. SKENAN [Suspect]
     Active Substance: MORPHINE SULFATE
     Indication: PAIN
     Dosage: 60 MG
     Route: 048
     Dates: start: 20201129, end: 20210106
  3. LYRICA [Concomitant]
     Active Substance: PREGABALIN
     Indication: PAIN
     Dosage: 225 MG
     Route: 048
     Dates: start: 20201227
  4. ZOLPIDEM [Concomitant]
     Active Substance: ZOLPIDEM TARTRATE
  5. PROFENID [Concomitant]
     Active Substance: KETOPROFEN
  6. XATRAL [Concomitant]
     Active Substance: ALFUZOSIN
  7. TRAMADOL (CHLORHYDRATE DE) [Suspect]
     Active Substance: TRAMADOL HYDROCHLORIDE
     Indication: PAIN
     Dosage: 200 MG
     Route: 048
     Dates: start: 20201224, end: 20210106
  8. ACTISKENAN 10 MG, GELULE [Suspect]
     Active Substance: MORPHINE SULFATE
     Indication: PAIN
     Dosage: 40 MG
     Route: 048
     Dates: start: 20201129, end: 20210107

REACTIONS (2)
  - Coma [Recovered/Resolved]
  - Pneumonia aspiration [Recovered/Resolved]

NARRATIVE: CASE EVENT DATE: 20210107
